FAERS Safety Report 16750001 (Version 1)
Quarter: 2020Q3

REPORT INFORMATION
  Report Type: Report from Study
  Country: US (occurrence: US)
  Receive Date: 20190828
  Receipt Date: 20190828
  Transmission Date: 20201104
  Serious: Yes (Hospitalization)
  Sender: FDA-Public Use
  Company Number: US-JNJFOC-20190727090

PATIENT
  Age: 63 Year
  Sex: Male

DRUGS (11)
  1. LENALIDOMIDE [Suspect]
     Active Substance: LENALIDOMIDE
     Indication: DIFFUSE LARGE B-CELL LYMPHOMA
     Dosage: 25 MG, QD
     Route: 048
     Dates: start: 20180628, end: 20190801
  2. ASPRIN [Concomitant]
     Active Substance: ASPIRIN
     Indication: PROPHYLAXIS
     Route: 048
     Dates: start: 20180306
  3. DIPHENHYDRAMINE. [Concomitant]
     Active Substance: DIPHENHYDRAMINE
     Indication: PREMEDICATION
     Dosage: SINGLE
     Route: 042
     Dates: start: 20180628
  4. ACETAMINOPHEN. [Concomitant]
     Active Substance: ACETAMINOPHEN
     Indication: PAIN
     Route: 048
     Dates: start: 20180524
  5. MILK OF MAGNESIA [Concomitant]
     Active Substance: MAGNESIUM HYDROXIDE
     Indication: CONSTIPATION
     Route: 048
     Dates: start: 20180822
  6. IBRUTINIB [Suspect]
     Active Substance: IBRUTINIB
     Indication: DIFFUSE LARGE B-CELL LYMPHOMA
     Dosage: 560 MG, QD
     Route: 048
     Dates: start: 20180628, end: 20190801
  7. ZOFRAN [Concomitant]
     Active Substance: ONDANSETRON HYDROCHLORIDE
     Route: 048
     Dates: start: 20180524
  8. MULTIVITAMIN                       /00097801/ [Concomitant]
     Active Substance: VITAMINS
     Indication: SUPPLEMENTATION THERAPY
     Dosage: 1 TAB, QD
     Route: 048
     Dates: start: 20180306
  9. ACETAMINOPHEN. [Concomitant]
     Active Substance: ACETAMINOPHEN
     Indication: PREMEDICATION
     Route: 042
     Dates: start: 20180628
  10. LISINOPRIL. [Concomitant]
     Active Substance: LISINOPRIL
     Route: 048
     Dates: start: 20190612
  11. FERROUS SULFATE. [Concomitant]
     Active Substance: FERROUS SULFATE
     Indication: SUPPLEMENTATION THERAPY
     Route: 048
     Dates: start: 20180524

REACTIONS (1)
  - Embolic cerebral infarction [Recovered/Resolved]

NARRATIVE: CASE EVENT DATE: 20190709
